FAERS Safety Report 24657192 (Version 2)
Quarter: 2025Q2

REPORT INFORMATION
  Report Type: Report from Study
  Country: IT (occurrence: IT)
  Receive Date: 20241125
  Receipt Date: 20250425
  Transmission Date: 20250716
  Serious: No
  Sender: SANDOZ
  Company Number: IT-SANDOZ-SDZ2024IT097428

PATIENT
  Age: 7 Year
  Sex: Female
  Weight: 15 kg

DRUGS (3)
  1. OMNITROPE [Suspect]
     Active Substance: SOMATROPIN
     Route: 065
  2. OMNITROPE [Suspect]
     Active Substance: SOMATROPIN
     Indication: Growth hormone deficiency
     Route: 058
     Dates: start: 20231210
  3. OMNITROPE [Suspect]
     Active Substance: SOMATROPIN
     Route: 065

REACTIONS (3)
  - Therapy interrupted [Unknown]
  - Product dose omission issue [Unknown]
  - Device mechanical issue [Unknown]

NARRATIVE: CASE EVENT DATE: 20241120
